FAERS Safety Report 11558337 (Version 1)
Quarter: 2015Q3

REPORT INFORMATION
  Report Type: Spontaneous
  Country: US (occurrence: US)
  Receive Date: 20150928
  Receipt Date: 20150928
  Transmission Date: 20151125
  Serious: Yes (Hospitalization)
  Sender: FDA-Public Use
  Company Number: US-HOSPIRA-3017152

PATIENT
  Age: 14 Year
  Sex: Male
  Weight: 46.3 kg

DRUGS (75)
  1. SODIUM CHLORIDE. [Concomitant]
     Active Substance: SODIUM CHLORIDE
     Indication: PRODUCT USED FOR UNKNOWN INDICATION
     Route: 042
  2. MORPHINE SULFATE. [Concomitant]
     Active Substance: MORPHINE SULFATE
     Indication: PAIN
     Dosage: ONCE
     Route: 042
     Dates: start: 20150908, end: 20150908
  3. BENADRYL [Concomitant]
     Active Substance: DIPHENHYDRAMINE HYDROCHLORIDE
     Indication: NAUSEA
     Dosage: 25-50 MG, ONCE
     Route: 042
  4. VISTARIL [Concomitant]
     Active Substance: HYDROXYZINE PAMOATE
     Indication: VOMITING
     Dosage: IVC, PRN
     Dates: start: 20150902, end: 20150904
  5. HYDROCORTISONE. [Suspect]
     Active Substance: HYDROCORTISONE
     Indication: DISEASE RECURRENCE
     Dosage: 24 MY, 0.48 ML, ONCE
     Route: 037
     Dates: start: 20150910, end: 20150910
  6. TRANSDERM SCOP [Concomitant]
     Active Substance: SCOPOLAMINE
     Indication: ANTIEMETIC SUPPORTIVE CARE
     Dosage: 1 EA
     Route: 061
     Dates: start: 20150904, end: 20150904
  7. DECADRON [Concomitant]
     Active Substance: DEXAMETHASONE
     Indication: PRODUCT USED FOR UNKNOWN INDICATION
     Route: 042
     Dates: end: 20150914
  8. MORPHINE SULFATE. [Concomitant]
     Active Substance: MORPHINE SULFATE
     Indication: PAIN
     Dosage: PRN
     Route: 042
     Dates: start: 20150903, end: 20150904
  9. DEXTROSE AND SODIUM CHLORIDE [Concomitant]
     Active Substance: DEXTROSE MONOHYDRATE\SODIUM CHLORIDE
     Indication: PRODUCT USED FOR UNKNOWN INDICATION
     Dosage: ONCE
     Route: 042
     Dates: start: 20150902, end: 20150902
  10. CYTARABINE. [Suspect]
     Active Substance: CYTARABINE
     Indication: NERVOUS SYSTEM DISORDER
     Dosage: 1.8 ML, ONCE
     Route: 037
     Dates: start: 20150910, end: 20150910
  11. ZOLOFT [Concomitant]
     Active Substance: SERTRALINE HYDROCHLORIDE
     Indication: ANTIDEPRESSANT THERAPY
     Route: 048
     Dates: start: 20150903, end: 20150904
  12. SOLU-MEDROL [Concomitant]
     Active Substance: METHYLPREDNISOLONE SODIUM SUCCINATE
     Indication: PREMEDICATION
     Dosage: ONCE
     Dates: start: 20150909, end: 20150909
  13. TYLENOL [Concomitant]
     Active Substance: ACETAMINOPHEN
     Indication: PYREXIA
     Dosage: PRN
     Route: 048
     Dates: start: 20150902, end: 20150904
  14. HEPARIN SODIUM. [Concomitant]
     Active Substance: HEPARIN SODIUM
     Indication: DRUG THERAPY
     Dosage: ONCE
     Route: 042
     Dates: start: 20150902, end: 20150902
  15. HEPARIN SODIUM. [Concomitant]
     Active Substance: HEPARIN SODIUM
     Indication: DRUG THERAPY
     Dosage: ORD
     Route: 042
     Dates: start: 20150902, end: 20150904
  16. TRANSDERM SCOP [Concomitant]
     Active Substance: SCOPOLAMINE
     Indication: ANTIEMETIC SUPPORTIVE CARE
     Dosage: 1 EA
     Route: 061
     Dates: start: 20150903, end: 20150904
  17. KYTRIL [Concomitant]
     Active Substance: GRANISETRON HYDROCHLORIDE
     Indication: NAUSEA
     Dosage: PRN
     Route: 042
     Dates: start: 20150903, end: 20150904
  18. MORPHINE SULFATE. [Concomitant]
     Active Substance: MORPHINE SULFATE
     Indication: PAIN
     Dosage: ONCE
     Dates: start: 20150910, end: 20150910
  19. WELLCOVORIN [Concomitant]
     Active Substance: LEUCOVORIN CALCIUM
     Indication: PRODUCT USED FOR UNKNOWN INDICATION
     Route: 048
     Dates: end: 20150914
  20. ATARAX [Concomitant]
     Active Substance: HYDROXYZINE\HYDROXYZINE HYDROCHLORIDE
     Indication: PRODUCT USED FOR UNKNOWN INDICATION
     Dosage: PRN
     Route: 048
  21. OMNIPAQUE [Concomitant]
     Active Substance: IOHEXOL
     Indication: SCAN WITH CONTRAST
     Dosage: ONCE
     Route: 042
     Dates: start: 20150902, end: 20150902
  22. ZOLOFT [Concomitant]
     Active Substance: SERTRALINE HYDROCHLORIDE
     Indication: ANTIDEPRESSANT THERAPY
     Dosage: DAILY
     Route: 048
  23. OMNICEF                            /00497602/ [Concomitant]
     Active Substance: CEFOTAXIME SODIUM
     Indication: PRODUCT USED FOR UNKNOWN INDICATION
     Route: 048
     Dates: end: 20150914
  24. HYDROCORTISONE. [Suspect]
     Active Substance: HYDROCORTISONE
     Indication: NERVOUS SYSTEM DISORDER
     Dosage: 24 MY, 0.48 ML, ONCE
     Route: 037
     Dates: start: 20150910, end: 20150910
  25. ATIVAN [Concomitant]
     Active Substance: LORAZEPAM
     Indication: NAUSEA
     Dosage: PRN
     Route: 042
     Dates: start: 20150909, end: 20150909
  26. MARINOL                            /00003301/ [Concomitant]
     Indication: ANTIEMETIC SUPPORTIVE CARE
     Route: 048
     Dates: start: 20150902, end: 20150904
  27. CELEBREX [Concomitant]
     Active Substance: CELECOXIB
     Indication: ANTIINFLAMMATORY THERAPY
     Route: 048
     Dates: start: 20150902, end: 20150904
  28. POTASSIUM CHLORIDE W/SODIUM CHLORIDE [Concomitant]
     Active Substance: POTASSIUM CHLORIDE\SODIUM CHLORIDE
     Indication: FLUID REPLACEMENT
     Dosage: 140 ML/HR
     Route: 042
     Dates: start: 20150902, end: 20150904
  29. SODIUM CHLORIDE. [Concomitant]
     Active Substance: SODIUM CHLORIDE
     Indication: PRODUCT USED FOR UNKNOWN INDICATION
     Dosage: 500 ML/HR, ONCE
     Route: 042
     Dates: start: 20150902, end: 20150902
  30. DOTAREM [Concomitant]
     Active Substance: GADOTERATE MEGLUMINE
     Indication: X-RAY WITH CONTRAST
     Dosage: ONCE
     Route: 042
     Dates: start: 20150904, end: 20150904
  31. DILAUDID [Concomitant]
     Active Substance: HYDROMORPHONE HYDROCHLORIDE
     Indication: PAIN MANAGEMENT
     Dosage: PRN
     Route: 042
     Dates: start: 20150902, end: 20150903
  32. DEXTROSE AND SODIUM CHLORIDE [Concomitant]
     Active Substance: DEXTROSE MONOHYDRATE\SODIUM CHLORIDE
     Indication: PRODUCT USED FOR UNKNOWN INDICATION
     Dosage: CONTINUOUS
     Route: 042
     Dates: end: 20150914
  33. BACTRIM [Concomitant]
     Active Substance: SULFAMETHOXAZOLE\TRIMETHOPRIM
     Indication: ANTIBIOTIC THERAPY
     Dosage: 1.5 MG, MOTUWE
     Route: 048
     Dates: start: 20150902, end: 20150904
  34. TYLENOL [Concomitant]
     Active Substance: ACETAMINOPHEN
     Indication: PAIN
     Dosage: ONCE
     Route: 048
     Dates: start: 20150909, end: 20150909
  35. MS CONTIN [Concomitant]
     Active Substance: MORPHINE SULFATE
     Indication: PAIN
     Dosage: PRN
     Route: 048
     Dates: start: 20150903, end: 20150904
  36. KYTRIL [Concomitant]
     Active Substance: GRANISETRON HYDROCHLORIDE
     Indication: VOMITING
     Dosage: PRN
     Route: 042
     Dates: start: 20150903, end: 20150904
  37. POTASSIUM CHLORIDE W/SODIUM CHLORIDE [Concomitant]
     Active Substance: POTASSIUM CHLORIDE\SODIUM CHLORIDE
     Indication: FLUID REPLACEMENT
     Dosage: 85 ML/HR
     Route: 042
     Dates: start: 20150912, end: 20150912
  38. SODIUM CHLORIDE. [Concomitant]
     Active Substance: SODIUM CHLORIDE
     Indication: PRODUCT USED FOR UNKNOWN INDICATION
     Dosage: ONCE
     Dates: start: 20150910, end: 20150910
  39. MORPHINE SULFATE. [Concomitant]
     Active Substance: MORPHINE SULFATE
     Indication: PAIN
     Dosage: ONCE
     Dates: start: 20150910, end: 20150910
  40. ZOFRAN [Concomitant]
     Active Substance: ONDANSETRON HYDROCHLORIDE
     Indication: PRODUCT USED FOR UNKNOWN INDICATION
     Dosage: ONCE
     Route: 048
  41. ATIVAN [Concomitant]
     Active Substance: LORAZEPAM
     Indication: NAUSEA
     Dosage: ONCE
     Dates: start: 20150902, end: 20150902
  42. HEPARIN SODIUM. [Concomitant]
     Active Substance: HEPARIN SODIUM
     Indication: DRUG THERAPY
     Dosage: ONCE
     Route: 042
     Dates: start: 20150912, end: 20150912
  43. MS CONTIN [Concomitant]
     Active Substance: MORPHINE SULFATE
     Indication: PAIN
     Route: 048
     Dates: end: 20150914
  44. DOLOPHINE [Concomitant]
     Active Substance: METHADONE HYDROCHLORIDE
     Indication: PAIN MANAGEMENT
     Route: 048
  45. SODIUM CHLORIDE. [Concomitant]
     Active Substance: SODIUM CHLORIDE
     Indication: PRODUCT USED FOR UNKNOWN INDICATION
     Dosage: ONCE
     Dates: start: 20150908, end: 20150908
  46. BENADRYL [Concomitant]
     Active Substance: DIPHENHYDRAMINE HYDROCHLORIDE
     Indication: VOMITING
     Dosage: PRN
     Route: 042
     Dates: start: 20150902, end: 20150904
  47. ACTIGALL [Concomitant]
     Active Substance: URSODIOL
     Indication: PRODUCT USED FOR UNKNOWN INDICATION
     Route: 048
     Dates: end: 20150914
  48. VISTARIL [Concomitant]
     Active Substance: HYDROXYZINE PAMOATE
     Indication: NAUSEA
     Dosage: IVC, PRN
     Dates: start: 20150902, end: 20150904
  49. SENOKOT [Concomitant]
     Active Substance: SENNOSIDES
     Indication: CONSTIPATION
     Dosage: PRN
     Route: 048
     Dates: start: 20150902, end: 20150904
  50. TYLENOL [Concomitant]
     Active Substance: ACETAMINOPHEN
     Indication: PAIN
     Dosage: PRN
     Route: 048
     Dates: start: 20150902, end: 20150904
  51. ATIVAN [Concomitant]
     Active Substance: LORAZEPAM
     Indication: VOMITING
     Dosage: PRN
     Route: 042
     Dates: start: 20150902, end: 20150904
  52. MS CONTIN [Concomitant]
     Active Substance: MORPHINE SULFATE
     Indication: PAIN
     Dosage: PRN
     Route: 048
     Dates: start: 20150904, end: 20150904
  53. DOLOPHINE [Concomitant]
     Active Substance: METHADONE HYDROCHLORIDE
     Indication: PAIN MANAGEMENT
     Route: 048
     Dates: start: 20150903, end: 20150904
  54. SODIUM CHLORIDE. [Concomitant]
     Active Substance: SODIUM CHLORIDE
     Indication: PRODUCT USED FOR UNKNOWN INDICATION
     Dosage: ONCE
     Dates: start: 20150909, end: 20150909
  55. MORPHINE SULFATE. [Concomitant]
     Active Substance: MORPHINE SULFATE
     Indication: PAIN
     Dosage: ONCE
     Route: 042
     Dates: start: 20150908, end: 20150908
  56. MORPHINE SULFATE. [Concomitant]
     Active Substance: MORPHINE SULFATE
     Indication: PAIN
     Dosage: PRN
     Route: 042
     Dates: start: 20150902, end: 20150902
  57. MORPHINE SULFATE. [Concomitant]
     Active Substance: MORPHINE SULFATE
     Indication: PAIN
     Dosage: PRN
     Route: 042
     Dates: start: 20150903, end: 20150903
  58. MYLOTARG [Concomitant]
     Active Substance: GEMTUZUMAB OZOGAMICIN
     Indication: LEUKAEMIA RECURRENT
     Route: 042
     Dates: start: 20150909, end: 20150909
  59. OMNIPAQUE [Concomitant]
     Active Substance: IOHEXOL
     Indication: SCAN WITH CONTRAST
     Dosage: ONCE
     Route: 042
     Dates: start: 20150912, end: 20150912
  60. PREVACID [Concomitant]
     Active Substance: LANSOPRAZOLE
     Indication: DYSPEPSIA
     Route: 048
     Dates: start: 20150903, end: 20150904
  61. ATIVAN [Concomitant]
     Active Substance: LORAZEPAM
     Indication: NAUSEA
     Dosage: PRN
     Route: 048
  62. ATIVAN [Concomitant]
     Active Substance: LORAZEPAM
     Indication: VOMITING
     Dosage: PRN
     Route: 042
     Dates: start: 20150909, end: 20150909
  63. METHOTREXATE [Suspect]
     Active Substance: METHOTREXATE
     Indication: NERVOUS SYSTEM DISORDER
     Dosage: 0.48 ML, ONCE
     Route: 037
     Dates: start: 20150910, end: 20150910
  64. HEPARIN SODIUM. [Concomitant]
     Active Substance: HEPARIN SODIUM
     Indication: DRUG THERAPY
     Dosage: ONCE
     Route: 042
     Dates: start: 20150910, end: 20150910
  65. KYTRIL [Concomitant]
     Active Substance: GRANISETRON HYDROCHLORIDE
     Indication: NAUSEA
     Dosage: PRN
     Route: 042
     Dates: start: 20150904, end: 20150904
  66. WELLCOVORIN [Concomitant]
     Active Substance: LEUCOVORIN CALCIUM
     Indication: PRODUCT USED FOR UNKNOWN INDICATION
     Dosage: ONCE
     Route: 048
     Dates: start: 20150909, end: 20150909
  67. BENADRYL [Concomitant]
     Active Substance: DIPHENHYDRAMINE HYDROCHLORIDE
     Indication: NAUSEA
     Dosage: PRN
     Route: 042
     Dates: start: 20150902, end: 20150904
  68. BENADRYL [Concomitant]
     Active Substance: DIPHENHYDRAMINE HYDROCHLORIDE
     Indication: NAUSEA
     Route: 042
     Dates: start: 20150909, end: 20150909
  69. CYTARABINE. [Suspect]
     Active Substance: CYTARABINE
     Indication: DISEASE RECURRENCE
     Dosage: 1.8 ML, ONCE
     Route: 037
     Dates: start: 20150910, end: 20150910
  70. ATIVAN [Concomitant]
     Active Substance: LORAZEPAM
     Indication: NAUSEA
     Dosage: PRN
     Route: 042
     Dates: start: 20150902, end: 20150904
  71. METHOTREXATE [Suspect]
     Active Substance: METHOTREXATE
     Indication: DISEASE RECURRENCE
     Dosage: 0.48 ML, ONCE
     Route: 037
     Dates: start: 20150910, end: 20150910
  72. HEPARIN SODIUM. [Concomitant]
     Active Substance: HEPARIN SODIUM
     Indication: DRUG THERAPY
     Dosage: ONCE
     Route: 042
     Dates: start: 20150908, end: 20150908
  73. HEPARIN SODIUM. [Concomitant]
     Active Substance: HEPARIN SODIUM
     Indication: DRUG THERAPY
     Dosage: ONCE
     Route: 042
     Dates: start: 20150909, end: 20150909
  74. KYTRIL [Concomitant]
     Active Substance: GRANISETRON HYDROCHLORIDE
     Indication: VOMITING
     Dosage: PRN
     Route: 042
     Dates: start: 20150904, end: 20150904
  75. LIDOCAINE. [Concomitant]
     Active Substance: LIDOCAINE
     Indication: PRODUCT USED FOR UNKNOWN INDICATION
     Dosage: ONCE
     Route: 058

REACTIONS (1)
  - Seizure [Recovered/Resolved]

NARRATIVE: CASE EVENT DATE: 20150913
